FAERS Safety Report 21140158 (Version 3)
Quarter: 2022Q4

REPORT INFORMATION
  Report Type: Spontaneous
  Country: JP (occurrence: JP)
  Receive Date: 20220728
  Receipt Date: 20221202
  Transmission Date: 20230113
  Serious: Yes (Other)
  Sender: FDA-Public Use
  Company Number: JP-BRISTOL-MYERS SQUIBB COMPANY-2022-079795

PATIENT
  Age: 62 Year
  Sex: Male

DRUGS (6)
  1. POMALYST [Suspect]
     Active Substance: POMALIDOMIDE
     Indication: Product used for unknown indication
     Route: 065
  2. POMALYST [Suspect]
     Active Substance: POMALIDOMIDE
     Route: 065
  3. LENADEX [Suspect]
     Active Substance: DEXAMETHASONE ACETATE
     Indication: Product used for unknown indication
     Route: 065
  4. LENADEX [Suspect]
     Active Substance: DEXAMETHASONE ACETATE
     Route: 065
  5. LENADEX [Suspect]
     Active Substance: DEXAMETHASONE ACETATE
     Route: 065
  6. LENADEX [Suspect]
     Active Substance: DEXAMETHASONE ACETATE
     Route: 065

REACTIONS (1)
  - Myelosuppression [Recovered/Resolved]
